FAERS Safety Report 6907414-6 (Version None)
Quarter: 2010Q3

REPORT INFORMATION
  Report Type: 
  Country: None (occurrence: None)
  Receive Date: 20100712
  Receipt Date: 20100603
  Transmission Date: 20110219
  Serious: Yes (Other)
  Sender: FDA-Public Use
  Company Number: US-001170

PATIENT
  Sex: Female
  Weight: 46.7205 kg

DRUGS (1)
  1. KUVAN [Suspect]
     Indication: PHENYLKETONURIA
     Dosage: (900 MG QD ORAL)
     Route: 048
     Dates: start: 20090801, end: 20090101

REACTIONS (7)
  - FATIGUE [None]
  - HYPOTHYROIDISM [None]
  - INFLUENZA LIKE ILLNESS [None]
  - OROPHARYNGEAL PAIN [None]
  - THYROID NEOPLASM [None]
  - THYROIDITIS SUBACUTE [None]
  - WEIGHT DECREASED [None]
